FAERS Safety Report 5832458-5 (Version None)
Quarter: 2008Q3

REPORT INFORMATION
  Report Type: 
  Country: None (occurrence: None)
  Receive Date: 20080730
  Receipt Date: 20080723
  Transmission Date: 20090109
  Serious: Yes (Hospitalization)
  Sender: FDA-Public Use
  Company Number: US024136

PATIENT
  Age: 52 Year
  Sex: Male
  Weight: 67.1324 kg

DRUGS (2)
  1. TREANDA [Suspect]
     Indication: CHRONIC LYMPHOCYTIC LEUKAEMIA
     Dosage: 70 MG/M2 QD INTRAVENOUS
     Route: 042
     Dates: start: 20080603, end: 20080604
  2. ALLOPURINOL [Concomitant]

REACTIONS (3)
  - ANAEMIA HAEMOLYTIC AUTOIMMUNE [None]
  - MALAISE [None]
  - PLATELET COUNT DECREASED [None]
